FAERS Safety Report 5684897-3 (Version None)
Quarter: 2008Q1

REPORT INFORMATION
  Report Type: 
  Country: None (occurrence: None)
  Receive Date: 20080328
  Receipt Date: 20071120
  Transmission Date: 20080703
  Serious: No
  Sender: FDA-Public Use
  Company Number: US-BRISTOL-MYERS SQUIBB COMPANY-13990114

PATIENT
  Age: 42 Year
  Sex: Male

DRUGS (3)
  1. ERBITUX [Suspect]
     Indication: NEOPLASM MALIGNANT
     Dates: end: 20070928
  2. RADIATION THERAPY [Suspect]
     Indication: NEOPLASM MALIGNANT
     Dates: end: 20070928
  3. CORTICOSTEROID [Concomitant]

REACTIONS (1)
  - SKIN EXFOLIATION [None]
